FAERS Safety Report 8421372-7 (Version None)
Quarter: 2012Q2

REPORT INFORMATION
  Report Type: 
  Country: None (occurrence: None)
  Receive Date: 20120608
  Receipt Date: 20120604
  Transmission Date: 20120825
  Serious: Yes (Hospitalization)
  Sender: FDA-Public Use
  Company Number: PHHY2012CL047890

PATIENT
  Age: 42 Year
  Sex: Female

DRUGS (3)
  1. LEVOTHYROXINE SODIUM [Concomitant]
     Dosage: 75 MG, DAILY
  2. LAMICTAL [Concomitant]
     Dosage: 200 MG, DAILY
  3. CLOZAPINE [Suspect]
     Indication: SCHIZOPHRENIA
     Dosage: 100 MG, DAILY
     Dates: start: 20040803

REACTIONS (1)
  - INGUINAL HERNIA [None]
